FAERS Safety Report 19212700 (Version 1)
Quarter: 2021Q2

REPORT INFORMATION
  Report Type: Spontaneous
  Country: EG (occurrence: EG)
  Receive Date: 20210504
  Receipt Date: 20210504
  Transmission Date: 20210717
  Serious: Yes (Life-Threatening)
  Sender: FDA-Public Use
  Company Number: EG-ELI_LILLY_AND_COMPANY-EG202105000074

PATIENT
  Age: 66 Year
  Sex: Female

DRUGS (2)
  1. GEMZAR [Suspect]
     Active Substance: GEMCITABINE HYDROCHLORIDE
     Indication: UTERINE CANCER
     Dosage: 2060 MG, UNKNOWN
     Route: 042
     Dates: start: 202102
  2. CARBOTINOL [Concomitant]
     Active Substance: CARBOPLATIN
     Indication: UTERINE CANCER
     Dosage: UNK, UNKNOWN
     Route: 042
     Dates: start: 202102

REACTIONS (9)
  - Peripheral swelling [Unknown]
  - Blood creatinine increased [Unknown]
  - Blood glucose increased [Unknown]
  - Aspartate aminotransferase decreased [Unknown]
  - Normochromic normocytic anaemia [Unknown]
  - Constipation [Unknown]
  - Creatinine renal clearance decreased [Unknown]
  - Immunodeficiency [Unknown]
  - Pain in extremity [Unknown]
